FAERS Safety Report 11220327 (Version 6)
Quarter: 2016Q2

REPORT INFORMATION
  Report Type: Report from Study
  Country: BR (occurrence: BR)
  Receive Date: 20150624
  Receipt Date: 20160622
  Transmission Date: 20160815
  Serious: Yes (Death, Hospitalization)
  Sender: FDA-Public Use
  Company Number: 2015SGN01038

PATIENT

DRUGS (13)
  1. DACARBAZINE. [Suspect]
     Active Substance: DACARBAZINE
     Indication: HODGKIN^S DISEASE
     Dosage: 497 MG, Q14D
     Route: 042
     Dates: start: 20150211, end: 20150513
  2. SERETIDE [Concomitant]
     Active Substance: FLUTICASONE PROPIONATE\SALMETEROL XINAFOATE
  3. PREDNISONE. [Concomitant]
     Active Substance: PREDNISONE
  4. INSULIN [Concomitant]
     Active Substance: INSULIN NOS
  5. BRENTUXIMAB VEDOTIN [Suspect]
     Active Substance: BRENTUXIMAB VEDOTIN
     Indication: HODGKIN^S DISEASE
     Dosage: 49.2 MG, Q2WEEKS
     Route: 042
     Dates: start: 20150211, end: 20150513
  6. DOXORUBICIN [Suspect]
     Active Substance: DOXORUBICIN
     Indication: HODGKIN^S DISEASE
     Dosage: 33.13 MG, Q2WEEKS
     Route: 042
     Dates: start: 20150211, end: 20150513
  7. ACETYLCYSTEINE. [Concomitant]
     Active Substance: ACETYLCYSTEINE
  8. AMITRIPTYLINE [Concomitant]
     Active Substance: AMITRIPTYLINE
  9. CILOSTAZOL. [Concomitant]
     Active Substance: CILOSTAZOL
  10. LEVOTHYROXINE SODIUM. [Concomitant]
     Active Substance: LEVOTHYROXINE SODIUM
  11. AMIODARONE [Concomitant]
     Active Substance: AMIODARONE
  12. VINBLASTINE [Suspect]
     Active Substance: VINBLASTINE
     Indication: HODGKIN^S DISEASE
     Dosage: 8.0 MG, Q14D
     Route: 042
     Dates: start: 20150211, end: 20150513
  13. FENOTEROL [Concomitant]
     Active Substance: FENOTEROL

REACTIONS (2)
  - Urinary tract infection [Not Recovered/Not Resolved]
  - Chronic obstructive pulmonary disease [Fatal]

NARRATIVE: CASE EVENT DATE: 20150603
